FAERS Safety Report 10346096 (Version 4)
Quarter: 2015Q2

REPORT INFORMATION
  Report Type: Spontaneous
  Country: US (occurrence: US)
  Receive Date: 20140728
  Receipt Date: 20150609
  Transmission Date: 20150821
  Serious: Yes (Hospitalization, Disabling)
  Sender: FDA-Public Use
  Company Number: US-BAYER-2014-111579

PATIENT
  Age: 46 Year
  Sex: Female
  Weight: 66 kg

DRUGS (15)
  1. YASMIN [Suspect]
     Active Substance: DROSPIRENONE\ETHINYL ESTRADIOL
     Dosage: UNK
     Dates: start: 200404, end: 200902
  2. COLACE [Concomitant]
     Active Substance: DOCUSATE SODIUM
  3. CIPRO [Concomitant]
     Active Substance: CIPROFLOXACIN HYDROCHLORIDE
     Indication: URINARY TRACT INFECTION
  4. ADDERALL [Concomitant]
     Active Substance: AMPHETAMINE ASPARTATE\AMPHETAMINE SULFATE\DEXTROAMPHETAMINE SACCHARATE\DEXTROAMPHETAMINE SULFATE
     Indication: SOMNOLENCE
  5. DULCOLAX [Concomitant]
     Active Substance: BISACODYL OR DOCUSATE SODIUM
  6. FIORICET [Concomitant]
     Active Substance: ACETAMINOPHEN\BUTALBITAL\CAFFEINE
     Indication: HEADACHE
  7. REOPRO [Concomitant]
     Active Substance: ABCIXIMAB
     Route: 042
  8. ULTRAM [Concomitant]
     Active Substance: TRAMADOL HYDROCHLORIDE
     Indication: PAIN
  9. TRAZODONE [Concomitant]
     Active Substance: TRAZODONE HYDROCHLORIDE
     Indication: INSOMNIA
     Dosage: UNK, HS
  10. CLOPIDOGREL [Concomitant]
     Active Substance: CLOPIDOGREL BISULFATE
  11. PROTONIX [Concomitant]
     Active Substance: PANTOPRAZOLE SODIUM
  12. IBUPROFEN. [Concomitant]
     Active Substance: IBUPROFEN
     Indication: PAIN
  13. SIMVASTATIN. [Concomitant]
     Active Substance: SIMVASTATIN
  14. ZOCOR [Concomitant]
     Active Substance: SIMVASTATIN
  15. TRAMADOL [Concomitant]
     Active Substance: TRAMADOL

REACTIONS (6)
  - Muscular weakness [Recovering/Resolving]
  - Cerebrovascular accident [Recovering/Resolving]
  - Injury [Recovering/Resolving]
  - Atrial septal defect [None]
  - Pain [Recovering/Resolving]
  - Cerebral artery thrombosis [Recovering/Resolving]

NARRATIVE: CASE EVENT DATE: 20090220
